FAERS Safety Report 26130980 (Version 1)
Quarter: 2025Q4

REPORT INFORMATION
  Report Type: Spontaneous
  Country: US (occurrence: None)
  Receive Date: 20251207
  Receipt Date: 20251207
  Transmission Date: 20260117
  Serious: No
  Sender: FDA-CTU
  Company Number: None

PATIENT
  Sex: Female

DRUGS (1)
  1. MICONAZOLE 3 [Suspect]
     Active Substance: MICONAZOLE NITRATE
     Indication: Fungal infection
     Dates: start: 20251206, end: 20251206

REACTIONS (2)
  - Burning sensation [None]
  - Pruritus [None]

NARRATIVE: CASE EVENT DATE: 20251206
